FAERS Safety Report 7034079-8 (Version None)
Quarter: 2010Q4

REPORT INFORMATION
  Report Type: 
  Country: None (occurrence: None)
  Receive Date: 20101006
  Receipt Date: 20100921
  Transmission Date: 20110411
  Serious: Yes (Other)
  Sender: FDA-Public Use
  Company Number: TCI2010A03992

PATIENT

DRUGS (2)
  1. ROZEREM [Suspect]
     Dosage: PER ORAL
     Route: 048
  2. PAXIL (PAROXETINE HYDROCHLOLRIDE) [Concomitant]

REACTIONS (2)
  - CONVULSION [None]
  - HEADACHE [None]
